FAERS Safety Report 9612495 (Version 7)
Quarter: 2015Q3

REPORT INFORMATION
  Report Type: Report from Study
  Country: US (occurrence: US)
  Receive Date: 20131010
  Receipt Date: 20150814
  Transmission Date: 20151125
  Serious: Yes (Hospitalization, Other)
  Sender: FDA-Public Use
  Company Number: US-SA-2013SA097193

PATIENT
  Age: 62 Year
  Sex: Female

DRUGS (2)
  1. SOLU-MEDROL [Suspect]
     Active Substance: METHYLPREDNISOLONE SODIUM SUCCINATE
     Route: 042
  2. AUBAGIO [Suspect]
     Active Substance: TERIFLUNOMIDE
     Indication: MULTIPLE SCLEROSIS
     Dosage: STARTED 3 MONTHS AGO
     Route: 048
     Dates: start: 20130712

REACTIONS (21)
  - Hand fracture [Recovering/Resolving]
  - Mental status changes [Not Recovered/Not Resolved]
  - Muscular weakness [Not Recovered/Not Resolved]
  - Tremor [Recovering/Resolving]
  - Blood glucose increased [Recovered/Resolved]
  - Gait disturbance [Recovering/Resolving]
  - Head discomfort [Recovered/Resolved]
  - Sleep disorder [Not Recovered/Not Resolved]
  - Wrist fracture [Recovering/Resolving]
  - Fatigue [Recovered/Resolved]
  - Visual impairment [Not Recovered/Not Resolved]
  - Road traffic accident [Recovering/Resolving]
  - Rib fracture [Recovering/Resolving]
  - Foot fracture [Recovering/Resolving]
  - Scapula fracture [Recovering/Resolving]
  - Balance disorder [Not Recovered/Not Resolved]
  - Pain in extremity [Not Recovered/Not Resolved]
  - Oedema peripheral [Not Recovered/Not Resolved]
  - Hepatic enzyme increased [Unknown]
  - Drug dose omission [Unknown]
  - Multiple sclerosis relapse [Not Recovered/Not Resolved]

NARRATIVE: CASE EVENT DATE: 201406
